FAERS Safety Report 17928321 (Version 1)
Quarter: 2020Q2

REPORT INFORMATION
  Report Type: Report from Study
  Country: None (occurrence: IL)
  Receive Date: 20200622
  Receipt Date: 20200622
  Transmission Date: 20200714
  Serious: Yes (Other)
  Sender: FDA-Public Use
  Company Number: IL-ABBVIE-20K-082-3395329-00

PATIENT
  Age: 89 Year
  Sex: Male

DRUGS (4)
  1. DOPICAR [Concomitant]
     Active Substance: CARBIDOPA\LEVODOPA
     Indication: PRODUCT USED FOR UNKNOWN INDICATION
     Dosage: HALF A PILL IN THE MIDDLE OF THE NIGHT REGULARLY
  2. DUODOPA [Suspect]
     Active Substance: CARBIDOPA\LEVODOPA
     Indication: PARKINSON^S DISEASE
     Route: 050
     Dates: start: 20191027
  3. SINEMET [Concomitant]
     Active Substance: CARBIDOPA\LEVODOPA
     Indication: PRODUCT USED FOR UNKNOWN INDICATION
     Dosage: 1 PILL BEFORE GOING TO SLEEP
  4. DUODOPA [Suspect]
     Active Substance: CARBIDOPA\LEVODOPA
     Dosage: CURRENT:MORNING DOSE 14ML, CONTINUOUS DOSE 3.9ML/HOUR, EXTRA DOSE 2ML
     Route: 050

REACTIONS (7)
  - Muscle spasms [Unknown]
  - Dyskinesia [Recovering/Resolving]
  - Abdominal pain lower [Unknown]
  - Constipation [Unknown]
  - Inguinal hernia [Unknown]
  - Weight decreased [Unknown]
  - On and off phenomenon [Recovering/Resolving]

NARRATIVE: CASE EVENT DATE: 2019
